FAERS Safety Report 4656771-2 (Version None)
Quarter: 2005Q2

REPORT INFORMATION
  Report Type: 
  Country: None (occurrence: None)
  Receive Date: 20050506
  Receipt Date: 20050426
  Transmission Date: 20051028
  Serious: No
  Sender: FDA-Public Use
  Company Number: 2005UW06475

PATIENT
  Age: 49 Year
  Sex: Female
  Weight: 54 kg

DRUGS (2)
  1. ATENOLOL [Suspect]
     Indication: HYPERTENSION
     Dosage: 25 MG TID PO
     Route: 048
     Dates: start: 20020101, end: 20050423
  2. GLUCOVANCE [Concomitant]

REACTIONS (1)
  - BLOOD PRESSURE INCREASED [None]
